FAERS Safety Report 4751114-8 (Version None)
Quarter: 2005Q3

REPORT INFORMATION
  Report Type: 
  Country: None (occurrence: None)
  Receive Date: 20050822
  Receipt Date: 20050810
  Transmission Date: 20060218
  Serious: Yes (Hospitalization)
  Sender: FDA-Public Use
  Company Number: 2005114774

PATIENT
  Age: 76 Year
  Sex: Female
  Weight: 56.6996 kg

DRUGS (2)
  1. ZOLOFT [Suspect]
     Indication: NERVOUSNESS
     Dosage: 50 MG (50 MG, 1 IN 1 D)
  2. CADUET [Suspect]
     Indication: BLOOD PRESSURE FLUCTUATION
     Dosage: 5/10

REACTIONS (8)
  - ARTERIAL OCCLUSIVE DISEASE [None]
  - ASTHENIA [None]
  - BLOOD PRESSURE FLUCTUATION [None]
  - BLOOD PRESSURE INCREASED [None]
  - DIALYSIS [None]
  - HEART RATE INCREASED [None]
  - PULMONARY OEDEMA [None]
  - RENAL FAILURE [None]
